APPROVED DRUG PRODUCT: DORIBAX
Active Ingredient: DORIPENEM
Strength: 250MG/VIAL **Federal Register determination that product was not discontinued or withdrawn for safety or effectiveness reasons**
Dosage Form/Route: INJECTABLE;INTRAVENOUS
Application: N022106 | Product #002
Applicant: SHIONOGI INC
Approved: Oct 5, 2010 | RLD: Yes | RS: No | Type: DISCN